FAERS Safety Report 22977013 (Version 7)
Quarter: 2024Q1

REPORT INFORMATION
  Report Type: Report from Study
  Country: US (occurrence: US)
  Receive Date: 20230925
  Receipt Date: 20240107
  Transmission Date: 20240410
  Serious: Yes (Hospitalization, Other)
  Sender: FDA-Public Use
  Company Number: US-002147023-NVSC2023US199707

PATIENT
  Sex: Female

DRUGS (4)
  1. KISQALI [Suspect]
     Active Substance: RIBOCICLIB
     Indication: Breast cancer
     Dosage: UNK
     Route: 065
  2. KISQALI [Suspect]
     Active Substance: RIBOCICLIB
     Dosage: 600 MG, QD (3 TABLETS)
     Route: 048
     Dates: start: 202310
  3. KISQALI [Suspect]
     Active Substance: RIBOCICLIB
     Dosage: 400 MG (2 TABLETS)
     Route: 065
  4. AMLODIPINE [Suspect]
     Active Substance: AMLODIPINE BESYLATE
     Indication: Product used for unknown indication
     Dosage: UNK
     Route: 065

REACTIONS (21)
  - Dyspnoea [Unknown]
  - Anaphylactic reaction [Unknown]
  - Food allergy [Unknown]
  - Pulmonary oedema [Recovering/Resolving]
  - Heart rate irregular [Unknown]
  - Pleural effusion [Unknown]
  - Peripheral swelling [Unknown]
  - Drug interaction [Unknown]
  - White blood cell count decreased [Unknown]
  - Red blood cell count decreased [Unknown]
  - Fatigue [Unknown]
  - Nausea [Unknown]
  - Cough [Unknown]
  - Taste disorder [Unknown]
  - Wheezing [Unknown]
  - Urticaria [Unknown]
  - Hypersensitivity [Unknown]
  - Blood test abnormal [Unknown]
  - Immune system disorder [Unknown]
  - Brain fog [Unknown]
  - Balance disorder [Unknown]
